FAERS Safety Report 8304435-6 (Version None)
Quarter: 2012Q2

REPORT INFORMATION
  Report Type: 
  Country: None (occurrence: None)
  Receive Date: 20120423
  Receipt Date: 20111205
  Transmission Date: 20120825
  Serious: No
  Sender: FDA-Public Use
  Company Number: US-COVIDIEN/TYCO HEALTHCARE/MALLINCKRODT-T201102832

PATIENT
  Sex: Female

DRUGS (7)
  1. METHYLIN [Suspect]
     Indication: NARCOLEPSY
     Dosage: 20 MG, TID
     Dates: start: 20111114
  2. ZANAFLEX [Concomitant]
     Indication: MUSCLE SPASMS
     Dosage: UNK
  3. OXYCODONE HCL [Concomitant]
     Indication: INTERVERTEBRAL DISC DEGENERATION
     Dosage: UNK
  4. AMBIEN [Concomitant]
     Indication: INSOMNIA
     Dosage: UNK
  5. MORPHINE [Concomitant]
     Indication: INTERVERTEBRAL DISC DEGENERATION
     Dosage: UNK
  6. ATENOLOL [Concomitant]
     Indication: HYPERTENSION
     Dosage: UNK
  7. ALBUTEROL [Concomitant]
     Indication: ASTHMA
     Dosage: UNK

REACTIONS (1)
  - DRUG SCREEN NEGATIVE [None]
